FAERS Safety Report 5370105-X (Version None)
Quarter: 2007Q2

REPORT INFORMATION
  Report Type: 
  Country: None (occurrence: None)
  Receive Date: 20070615
  Receipt Date: 20070416
  Transmission Date: 20071010
  Serious: Yes (Other)
  Sender: FDA-Public Use
  Company Number: US-JNJFOC-20070403281

PATIENT
  Age: 70 Year
  Sex: Female
  Weight: 57.6068 kg

DRUGS (5)
  1. PEPCID AC [Suspect]
     Indication: DYSPEPSIA
     Dosage: 10 MG, 1 IN 1 TOTAL, ORAL
     Route: 048
     Dates: start: 20070415, end: 20070415
  2. WELLBUTRIN [Concomitant]
  3. OMEPRAZOLE [Concomitant]
  4. ENULOSE [Concomitant]
  5. KLONAZEPAM (CLONAZEPAM) [Concomitant]

REACTIONS (3)
  - HYPOAESTHESIA FACIAL [None]
  - HYPOAESTHESIA ORAL [None]
  - TINNITUS [None]
